FAERS Safety Report 6489812-0 (Version None)
Quarter: 2009Q4

REPORT INFORMATION
  Report Type: 
  Country: None (occurrence: None)
  Receive Date: 20091211
  Receipt Date: 20091204
  Transmission Date: 20100525
  Serious: Yes (Hospitalization)
  Sender: FDA-Public Use
  Company Number: US-BIOGENIDEC-2009BI040175

PATIENT
  Age: 62 Year
  Sex: Female

DRUGS (2)
  1. AVONEX [Suspect]
     Indication: MULTIPLE SCLEROSIS
     Route: 030
     Dates: start: 20000801, end: 20040503
  2. AVONEX [Suspect]
     Route: 030
     Dates: start: 20050516

REACTIONS (4)
  - ARTHROPATHY [None]
  - FALL [None]
  - PELVIC FRACTURE [None]
  - RHEUMATOID ARTHRITIS [None]
